FAERS Safety Report 7511785-X (Version None)
Quarter: 2011Q2

REPORT INFORMATION
  Report Type: 
  Country: None (occurrence: None)
  Receive Date: 20110531
  Receipt Date: 20110524
  Transmission Date: 20111010
  Serious: Yes (Other)
  Sender: FDA-Public Use
  Company Number: US-JNJFOC-20110511341

PATIENT
  Sex: Male

DRUGS (5)
  1. ULTRAM ER [Suspect]
     Indication: BACK PAIN
     Route: 048
     Dates: end: 20110505
  2. XANAX [Suspect]
     Indication: ANXIETY
     Route: 048
     Dates: start: 20110101, end: 20110101
  3. ULTRAM ER [Suspect]
     Indication: NECK PAIN
     Route: 048
     Dates: end: 20110505
  4. XANAX [Suspect]
     Indication: POST-TRAUMATIC STRESS DISORDER
     Route: 048
     Dates: start: 20110101, end: 20110101
  5. ZOLOFT [Suspect]
     Indication: POST-TRAUMATIC STRESS DISORDER
     Route: 048
     Dates: start: 20110509

REACTIONS (4)
  - DRUG INTERACTION [None]
  - SEDATION [None]
  - HANGOVER [None]
  - POST-TRAUMATIC STRESS DISORDER [None]
